FAERS Safety Report 10737949 (Version 1)
Quarter: 2015Q1

REPORT INFORMATION
  Report Type: Spontaneous
  Country: US (occurrence: None)
  Receive Date: 20150122
  Receipt Date: 20150122
  Transmission Date: 20150721
  Serious: Yes (Other)
  Sender: FDA-Public Use
  Company Number: 2014-US-014535

PATIENT
  Age: 56 Year
  Sex: Female
  Weight: 65.3 kg

DRUGS (6)
  1. XYREM [Suspect]
     Active Substance: SODIUM OXYBATE
     Indication: NARCOLEPSY
     Route: 048
     Dates: start: 200906, end: 2009
  2. CELEXA [Concomitant]
     Active Substance: CITALOPRAM HYDROBROMIDE
  3. PROGESTERONE. [Concomitant]
     Active Substance: PROGESTERONE
  4. DIOVAN [Concomitant]
     Active Substance: VALSARTAN
  5. VIVELLE DOT [Concomitant]
     Active Substance: ESTRADIOL
  6. ORACEA [Concomitant]
     Active Substance: DOXYCYCLINE

REACTIONS (12)
  - Arthralgia [None]
  - Somnolence [None]
  - Malaise [None]
  - Periodic limb movement disorder [None]
  - Disturbance in attention [None]
  - Hypothyroidism [None]
  - Anxiety [None]
  - Sleep apnoea syndrome [None]
  - Restless legs syndrome [None]
  - Fatigue [None]
  - Weight decreased [None]
  - Hypersomnia [None]

NARRATIVE: CASE EVENT DATE: 20130923
